FAERS Safety Report 20817379 (Version 2)
Quarter: 2022Q2

REPORT INFORMATION
  Report Type: Spontaneous
  Country: BR (occurrence: BR)
  Receive Date: 20220512
  Receipt Date: 20220516
  Transmission Date: 20220721
  Serious: Yes (Death, Other)
  Sender: FDA-Public Use
  Company Number: BR-BoehringerIngelheim-2022-BI-168772

PATIENT
  Age: 90 Year
  Sex: Male

DRUGS (1)
  1. ALTEPLASE [Suspect]
     Active Substance: ALTEPLASE
     Indication: Ischaemic stroke
     Route: 065
     Dates: start: 20220423, end: 20220423

REACTIONS (2)
  - Pulmonary sepsis [Fatal]
  - Haemorrhagic stroke [Unknown]

NARRATIVE: CASE EVENT DATE: 20220425
